FAERS Safety Report 6327692-4 (Version None)
Quarter: 2009Q3

REPORT INFORMATION
  Report Type: 
  Country: None (occurrence: None)
  Receive Date: 20090825
  Receipt Date: 20090817
  Transmission Date: 20100115
  Serious: Yes (Hospitalization, Other)
  Sender: FDA-Public Use
  Company Number: PHHO2009US07336

PATIENT
  Sex: Male
  Weight: 101 kg

DRUGS (18)
  1. CGP 41251 T30685+CAPS [Suspect]
     Indication: ACUTE MYELOID LEUKAEMIA
     Dosage: DOUBLE BLIND
     Dates: start: 20090501, end: 20090509
  2. CGP 41251 T30685+CAPS [Suspect]
     Dosage: DOUBLE BLIND
     Route: 048
     Dates: start: 20090522, end: 20090526
  3. CGP 41251 T30685+CAPS [Suspect]
     Dosage: DOUBLE BLIND
     Dates: end: 20090705
  4. CGP 41251 T30685+CAPS [Suspect]
     Dosage: DOUBLE BLIND
     Route: 048
     Dates: start: 20090730
  5. TOBRAMYCIN POWDER FOR INHALATION (TIP) [Suspect]
  6. LOPRESSOR [Suspect]
  7. DAUNORUBICIN HCL [Suspect]
     Indication: ACUTE MYELOID LEUKAEMIA
     Dosage: UNK
     Route: 042
     Dates: start: 20090424
  8. CYTARABINE [Suspect]
     Indication: ACUTE MYELOID LEUKAEMIA
     Dosage: UNK
     Dates: start: 20090424
  9. ARA-C [Suspect]
     Dosage: 3000 MG/M2 DAYS 1,3,5
     Dates: end: 20090628
  10. ACYCLOVIR [Suspect]
  11. LEVOFLOXACIN [Suspect]
  12. PRIMAXIN [Suspect]
  13. LEVAQUIN [Suspect]
  14. FLUCONAZOLE [Suspect]
  15. VANCOMYCIN [Suspect]
  16. METOPROLOL [Concomitant]
  17. MYCELEX [Concomitant]
  18. DEXAMETHASONE [Concomitant]

REACTIONS (20)
  - BLOOD POTASSIUM DECREASED [None]
  - BRADYCARDIA [None]
  - CHILLS [None]
  - ELECTROCARDIOGRAM QT PROLONGED [None]
  - ENTEROCOCCAL INFECTION [None]
  - ERYTHEMA OF EYELID [None]
  - EYE DISCHARGE [None]
  - EYELID OEDEMA [None]
  - FEBRILE NEUTROPENIA [None]
  - HAEMOGLOBIN DECREASED [None]
  - PERIORBITAL CELLULITIS [None]
  - PETECHIAE [None]
  - PLATELET COUNT DECREASED [None]
  - PRURITUS [None]
  - PURPURA [None]
  - PYREXIA [None]
  - RASH MACULO-PAPULAR [None]
  - STAPHYLOCOCCAL INFECTION [None]
  - VENTRICULAR EXTRASYSTOLES [None]
  - WHITE BLOOD CELL COUNT DECREASED [None]
